FAERS Safety Report 10233531 (Version 1)
Quarter: 2014Q2

REPORT INFORMATION
  Report Type: Spontaneous
  Country: FR (occurrence: FR)
  Receive Date: 20140612
  Receipt Date: 20140612
  Transmission Date: 20141212
  Serious: Yes (Hospitalization)
  Sender: FDA-Public Use
  Company Number: FR-TEVA-486571ISR

PATIENT
  Age: 38 Year
  Sex: Male

DRUGS (6)
  1. AMOXICILLINE/ACIDE CLAVULANIQUE TEVA 1G/125MG ADULTES [Suspect]
     Indication: SINUSITIS
     Dosage: 3 DOSAGE FORMS DAILY;
     Dates: start: 20090523, end: 20090524
  2. DEXTROPROPOXYPHENE PARACETAMOL TEVA 30MG/400MG [Suspect]
     Indication: SINUSITIS
     Dosage: 3 DOSAGE FORMS DAILY;
     Dates: start: 20090523, end: 20090526
  3. PREDNISONE WINTHROP 20MG [Suspect]
     Indication: SINUSITIS
     Dosage: 20 MILLIGRAM DAILY;
     Route: 048
     Dates: start: 20090523, end: 20090523
  4. RHINOFLUIMUCIL [Concomitant]
     Indication: SINUSITIS
     Dosage: 3 DOSAGE FORMS DAILY;
     Route: 045
     Dates: start: 20090515, end: 20090525
  5. HUILE GOMENOLEE [Concomitant]
     Route: 045
     Dates: start: 20090515
  6. SINOMARIN [Concomitant]
     Route: 045
     Dates: start: 20090515, end: 20090525

REACTIONS (5)
  - Rash [Recovered/Resolved]
  - Pyrexia [Recovered/Resolved]
  - Hypertransaminasaemia [Recovered/Resolved]
  - C-reactive protein increased [Recovered/Resolved]
  - Drug reaction with eosinophilia and systemic symptoms [Recovered/Resolved]
